FAERS Safety Report 23540949 (Version 2)
Quarter: 2024Q2

REPORT INFORMATION
  Report Type: Spontaneous
  Country: US (occurrence: US)
  Receive Date: 20240219
  Receipt Date: 20240517
  Transmission Date: 20240716
  Serious: No
  Sender: FDA-Public Use
  Company Number: US-Stemline Therapeutics, Inc.-2024ST000454

PATIENT
  Age: 63 Year
  Sex: Female

DRUGS (2)
  1. ORSERDU [Suspect]
     Active Substance: ELACESTRANT
     Indication: Product used for unknown indication
     Route: 048
     Dates: start: 20231025
  2. TRUQAP [Concomitant]
     Active Substance: CAPIVASERTIB
     Indication: Bone neoplasm
     Dosage: 400MG TWICE DAILY (4 DAYS ON / 3 DAYS OFF)
     Dates: start: 20240311

REACTIONS (5)
  - Blood glucose increased [Recovering/Resolving]
  - Arthralgia [Not Recovered/Not Resolved]
  - Hot flush [Not Recovered/Not Resolved]
  - Blood creatinine increased [Unknown]
  - Diarrhoea [Recovering/Resolving]

NARRATIVE: CASE EVENT DATE: 20240313
